FAERS Safety Report 24845244 (Version 1)
Quarter: 2025Q1

REPORT INFORMATION
  Report Type: Spontaneous
  Country: FR (occurrence: FR)
  Receive Date: 20250115
  Receipt Date: 20250115
  Transmission Date: 20250409
  Serious: Yes (Death, Other)
  Sender: SANOFI AVENTIS
  Company Number: None

PATIENT
  Age: 64 Year
  Sex: Female
  Weight: 160 kg

DRUGS (5)
  1. PROTAMINE [Suspect]
     Active Substance: PROTAMINE
     Indication: Procoagulant therapy
     Route: 042
     Dates: start: 20241206, end: 20241206
  2. PROTAMINE [Suspect]
     Active Substance: PROTAMINE
     Route: 042
     Dates: start: 20241206, end: 20241206
  3. LOVENOX [Suspect]
     Active Substance: ENOXAPARIN SODIUM
     Route: 065
  4. ADRENALIN [Concomitant]
     Active Substance: EPINEPHRINE
     Route: 065
  5. SODIUM BICARBONATE [Concomitant]
     Active Substance: SODIUM BICARBONATE
     Route: 065

REACTIONS (2)
  - Hypotension [Fatal]
  - Cardio-respiratory arrest [Fatal]

NARRATIVE: CASE EVENT DATE: 20241206
